FAERS Safety Report 8233794-8 (Version None)
Quarter: 2012Q1

REPORT INFORMATION
  Report Type: 
  Country: None (occurrence: None)
  Receive Date: 20120326
  Receipt Date: 20120322
  Transmission Date: 20120608
  Serious: Yes (Death)
  Sender: FDA-Public Use
  Company Number: SE-B.I. PHARMACEUTICALS,INC./RIDGEFIELD-2012-SW-00155SW

PATIENT
  Age: 8 Decade
  Sex: Male

DRUGS (3)
  1. SPIRIVA RESPIMAT [Suspect]
     Indication: LUNG NEOPLASM MALIGNANT
  2. SPIRIVA RESPIMAT [Suspect]
     Indication: CHRONIC OBSTRUCTIVE PULMONARY DISEASE
     Dosage: 0.5 NR
     Dates: start: 20120101
  3. SPIRIVA RESPIMAT [Suspect]
     Indication: DYSPNOEA

REACTIONS (2)
  - DEATH [None]
  - LUNG NEOPLASM MALIGNANT [None]
